FAERS Safety Report 13767441 (Version 2)
Quarter: 2017Q3

REPORT INFORMATION
  Report Type: Spontaneous
  Country: US (occurrence: US)
  Receive Date: 20170719
  Receipt Date: 20170830
  Transmission Date: 20171127
  Serious: Yes (Hospitalization, Other)
  Sender: FDA-Public Use
  Company Number: US-GLAXOSMITHKLINE-US2017GSK110846

PATIENT
  Sex: Female

DRUGS (1)
  1. BENLYSTA [Suspect]
     Active Substance: BELIMUMAB
     Indication: PRODUCT USED FOR UNKNOWN INDICATION
     Dosage: UNK, U

REACTIONS (7)
  - Deep vein thrombosis [Unknown]
  - Osteomyelitis [Unknown]
  - Bone graft [Unknown]
  - Thrombophlebitis superficial [Unknown]
  - Osteitis [Unknown]
  - Tooth extraction [Unknown]
  - Jaw operation [Unknown]
